FAERS Safety Report 5467364-1 (Version None)
Quarter: 2007Q3

REPORT INFORMATION
  Report Type: 
  Country: None (occurrence: None)
  Receive Date: 20070925
  Receipt Date: 20070917
  Transmission Date: 20080115
  Serious: Yes (Hospitalization)
  Sender: FDA-Public Use
  Company Number: US-PFIZER INC-2007061873

PATIENT
  Sex: Female
  Weight: 59.2 kg

DRUGS (9)
  1. ATORVASTATIN CALCIUM [Suspect]
     Indication: CORONARY ARTERY DISEASE
     Dosage: DAILY DOSE:20MG
     Route: 048
     Dates: start: 20041102, end: 20041129
  2. ATORVASTATIN CALCIUM [Suspect]
     Dosage: DAILY DOSE:20MG
     Route: 048
  3. FUROSEMIDE [Concomitant]
  4. METOPROLOL [Concomitant]
     Dates: start: 20040301
  5. AMLODIPINE [Concomitant]
     Dates: start: 19940101
  6. METFORMIN HCL [Concomitant]
     Dates: start: 19990101
  7. GLIPIZIDE [Concomitant]
     Dates: start: 19990101
  8. AGGRENOX [Concomitant]
     Dates: start: 20050921, end: 20060628
  9. SYNTHROID [Concomitant]
     Dates: start: 20050921

REACTIONS (1)
  - TRANSIENT ISCHAEMIC ATTACK [None]
